FAERS Safety Report 12336957 (Version 3)
Quarter: 2017Q1

REPORT INFORMATION
  Report Type: Report from Study
  Country: JP (occurrence: JP)
  Receive Date: 20160505
  Receipt Date: 20170314
  Transmission Date: 20170428
  Serious: Yes (Other)
  Sender: FDA-Public Use
  Company Number: JP-JNJFOC-20160413689

PATIENT
  Age: 42 Year
  Sex: Male
  Weight: 49 kg

DRUGS (2)
  1. DEXAMETHASONE. [Concomitant]
     Active Substance: DEXAMETHASONE
     Indication: PREMEDICATION
     Route: 065
     Dates: start: 20160329, end: 20160329
  2. YONDELIS [Suspect]
     Active Substance: TRABECTEDIN
     Indication: EPITHELIOID SARCOMA
     Dosage: 24 HOURS INFUSION
     Route: 042
     Dates: start: 20160329, end: 20160425

REACTIONS (3)
  - Hepatobiliary disease [Recovered/Resolved]
  - Aspartate aminotransferase increased [Recovered/Resolved]
  - Alanine aminotransferase increased [Recovered/Resolved]

NARRATIVE: CASE EVENT DATE: 20160401
